FAERS Safety Report 13124757 (Version 1)
Quarter: 2017Q1

REPORT INFORMATION
  Report Type: Spontaneous
  Country: US (occurrence: US)
  Receive Date: 20170117
  Receipt Date: 20170117
  Transmission Date: 20170428
  Serious: No
  Sender: FDA-Public Use
  Company Number: None

PATIENT
  Age: 64 Year
  Sex: Female
  Weight: 100 kg

DRUGS (2)
  1. PROAIR HFA [Suspect]
     Active Substance: ALBUTEROL SULFATE
  2. ALBUTEROL SULFATE INHALATION POWDER [Concomitant]

REACTIONS (6)
  - Visual impairment [None]
  - Sensory disturbance [None]
  - Dry eye [None]
  - Dysphagia [None]
  - Photophobia [None]
  - Burning sensation [None]

NARRATIVE: CASE EVENT DATE: 20161229
